FAERS Safety Report 19569409 (Version 1)
Quarter: 2021Q3

REPORT INFORMATION
  Report Type: Report from Study
  Country: US (occurrence: US)
  Receive Date: 20210716
  Receipt Date: 20210716
  Transmission Date: 20211014
  Serious: Yes (Other)
  Sender: FDA-Public Use
  Company Number: US-ASTRAZENECA-2021A619564

PATIENT
  Sex: Female

DRUGS (1)
  1. LYNPARZA [Suspect]
     Active Substance: OLAPARIB
     Indication: OVARIAN CANCER
     Route: 048

REACTIONS (6)
  - Heart rate decreased [Unknown]
  - White blood cell count decreased [Unknown]
  - Bone pain [Unknown]
  - Abnormal faeces [Unknown]
  - Alopecia [Unknown]
  - Red blood cell count decreased [Unknown]
